FAERS Safety Report 13533379 (Version 5)
Quarter: 2018Q2

REPORT INFORMATION
  Report Type: Report from Study
  Country: US (occurrence: US)
  Receive Date: 20170510
  Receipt Date: 20180503
  Transmission Date: 20180711
  Serious: Yes (Hospitalization, Other)
  Sender: FDA-Public Use
  Company Number: US-ACTELION-A-US2017-152600

PATIENT
  Age: 58 Year
  Sex: Female
  Weight: 54.88 kg

DRUGS (6)
  1. COUMADIN [Concomitant]
     Active Substance: WARFARIN SODIUM
  2. NIFEDIPINE. [Concomitant]
     Active Substance: NIFEDIPINE
  3. VELETRI [Suspect]
     Active Substance: EPOPROSTENOL
     Indication: PULMONARY ARTERIAL HYPERTENSION
     Dosage: 51.5 NG/KG, PER MIN
     Route: 042
  4. REVATIO [Concomitant]
     Active Substance: SILDENAFIL CITRATE
  5. XARELTO [Concomitant]
     Active Substance: RIVAROXABAN
  6. VELETRI [Suspect]
     Active Substance: EPOPROSTENOL
     Dosage: 51.5 NG/KG, PER MIN
     Route: 042

REACTIONS (16)
  - Dyspnoea [Unknown]
  - Back pain [Unknown]
  - Fatigue [Unknown]
  - Chest pain [Unknown]
  - Hearing aid user [Unknown]
  - Kidney infection [Unknown]
  - Plasma cell myeloma [Unknown]
  - Fall [Unknown]
  - Thyroid cancer [Unknown]
  - Blood alkaline phosphatase increased [Not Recovered/Not Resolved]
  - Dyspnoea exertional [Unknown]
  - Palpitations [Unknown]
  - Bacteraemia [Recovered/Resolved]
  - Urinary tract infection [Unknown]
  - Oxygen consumption increased [Unknown]
  - Hypoacusis [Unknown]

NARRATIVE: CASE EVENT DATE: 20170410
